FAERS Safety Report 19744783 (Version 1)
Quarter: 2021Q3

REPORT INFORMATION
  Report Type: Spontaneous
  Country: DE (occurrence: DE)
  Receive Date: 20210825
  Receipt Date: 20210825
  Transmission Date: 20211014
  Serious: Yes (Hospitalization)
  Sender: FDA-Public Use
  Company Number: DE-MYLANLABS-2021M1054450

PATIENT
  Age: 70 Year
  Sex: Female
  Weight: 74 kg

DRUGS (11)
  1. PRAMIPEXOL                         /01356401/ [Concomitant]
     Active Substance: PRAMIPEXOLE
     Dosage: 0.18 MG, 1?1?1?1
  2. JARDIANCE [Concomitant]
     Active Substance: EMPAGLIFLOZIN
     Dosage: 10 MG, 1?0?0?0
  3. VOCADO [Concomitant]
     Active Substance: AMLODIPINE BESYLATE\OLMESARTAN MEDOXOMIL
     Dosage: 10|40 MG, 1?0?0?0
  4. METFORMIN [Concomitant]
     Active Substance: METFORMIN HYDROCHLORIDE
     Dosage: 1000 MG, 1?0?1?0
  5. OMEPRAZOL                          /00661201/ [Concomitant]
     Active Substance: OMEPRAZOLE
     Dosage: 40 MG, 1?0?1?0
  6. VICTOZA [Concomitant]
     Active Substance: LIRAGLUTIDE
     Dosage: 1.8 MG, 0?0?1?0, FERTIGSPRITZEN
     Route: 058
  7. TRAMADOL. [Concomitant]
     Active Substance: TRAMADOL
     Dosage: 200 MG, 1?1?1?1
  8. TOUJEO [Concomitant]
     Active Substance: INSULIN GLARGINE
     Dosage: 58 IE, 0?0?0?1, INJEKTIONS?/INFUSIONSL?SUNG
     Route: 058
  9. SIMVASTATIN. [Concomitant]
     Active Substance: SIMVASTATIN
     Dosage: 40 MG, 0?0?1?0
  10. METOPROLOL. [Suspect]
     Active Substance: METOPROLOL
     Indication: PRODUCT USED FOR UNKNOWN INDICATION
     Dosage: 95 MG, 0?0.5?0?0
     Route: 065
  11. ASPIRIN. [Concomitant]
     Active Substance: ASPIRIN
     Dosage: 100 MG, 1?0?0?0

REACTIONS (3)
  - Wound [Unknown]
  - Condition aggravated [Unknown]
  - Cellulitis [Unknown]
